FAERS Safety Report 8073256-4 (Version None)
Quarter: 2012Q1

REPORT INFORMATION
  Report Type: 
  Country: None (occurrence: None)
  Receive Date: 20120126
  Receipt Date: 20120123
  Transmission Date: 20120608
  Serious: No
  Sender: FDA-Public Use
  Company Number: JP-JNJFOC-20120106797

PATIENT
  Sex: Female
  Weight: 51 kg

DRUGS (2)
  1. METHOTREXATE [Concomitant]
     Route: 048
  2. SIMPONI [Suspect]
     Indication: RHEUMATOID ARTHRITIS
     Route: 058
     Dates: start: 20111110

REACTIONS (2)
  - INJECTION SITE ERYTHEMA [None]
  - IMMEDIATE POST-INJECTION REACTION [None]
